FAERS Safety Report 10189237 (Version 1)
Quarter: 2014Q2

REPORT INFORMATION
  Report Type: Spontaneous
  Country: IT (occurrence: IT)
  Receive Date: 20140522
  Receipt Date: 20140522
  Transmission Date: 20141212
  Serious: Yes (Other)
  Sender: FDA-Public Use
  Company Number: PHHY2014IT058902

PATIENT
  Age: 12 Year
  Sex: Male

DRUGS (1)
  1. CHLORPROMAZINE [Suspect]
     Indication: GENERALISED ANXIETY DISORDER
     Dosage: 6.25 MG, PER DAY
     Route: 048

REACTIONS (2)
  - Hyperacusis [Not Recovered/Not Resolved]
  - Tinnitus [Not Recovered/Not Resolved]
